FAERS Safety Report 8747206 (Version 10)
Quarter: 2013Q3

REPORT INFORMATION
  Report Type: Report from Study
  Country: US (occurrence: US)
  Receive Date: 20120827
  Receipt Date: 20130805
  Transmission Date: 20140515
  Serious: Yes (Hospitalization)
  Sender: FDA-Public Use
  Company Number: US-JNJFOC-20120707385

PATIENT
  Age: 34 Year
  Sex: Female
  Weight: 130.18 kg

DRUGS (6)
  1. PREZISTA [Suspect]
     Indication: HIV INFECTION
     Route: 048
     Dates: start: 20120426
  2. NORVIR [Concomitant]
     Indication: HIV INFECTION
     Route: 048
     Dates: start: 20120426
  3. COMBIVIR [Concomitant]
     Indication: HIV INFECTION
     Route: 048
     Dates: start: 20120426
  4. ALDOMET [Concomitant]
     Indication: HYPERTENSION
     Route: 048
     Dates: start: 20120417
  5. ZANTAC [Concomitant]
     Indication: GASTROOESOPHAGEAL REFLUX DISEASE
     Route: 048
     Dates: start: 20120301
  6. PRENATAL VITAMINS [Concomitant]
     Route: 048
     Dates: start: 201209

REACTIONS (2)
  - Gestational diabetes [Recovered/Resolved]
  - Exposure during pregnancy [Recovered/Resolved]
